FAERS Safety Report 15677095 (Version 1)
Quarter: 2018Q4

REPORT INFORMATION
  Report Type: Spontaneous
  Country: US (occurrence: US)
  Receive Date: 20181130
  Receipt Date: 20181130
  Transmission Date: 20190205
  Serious: No
  Sender: FDA-Public Use
  Company Number: US-PFIZER INC-2018488448

PATIENT
  Sex: Male

DRUGS (2)
  1. EFFEXOR XR [Suspect]
     Active Substance: VENLAFAXINE HYDROCHLORIDE
     Dosage: 35.5 MG, UNK (1ST WEEK ON 35.5 MG)
  2. EFFEXOR XR [Suspect]
     Active Substance: VENLAFAXINE HYDROCHLORIDE
     Dosage: 75 MG, UNK (75 MG AFTER 2ND WEEK)

REACTIONS (4)
  - Dizziness postural [Unknown]
  - Dry mouth [Unknown]
  - Hyperhidrosis [Unknown]
  - Decreased appetite [Unknown]
